FAERS Safety Report 11435167 (Version 1)
Quarter: 2015Q3

REPORT INFORMATION
  Report Type: Spontaneous
  Country: JP (occurrence: JP)
  Receive Date: 20150831
  Receipt Date: 20150831
  Transmission Date: 20151125
  Serious: Yes (Death)
  Sender: FDA-Public Use
  Company Number: JP-MALLINCKRODT-T201504139

PATIENT
  Age: 63 Year
  Sex: Female
  Weight: 55 kg

DRUGS (9)
  1. PANVITAN [Concomitant]
     Dosage: 1000 MG
     Route: 048
     Dates: end: 20150701
  2. DORMICUM [Concomitant]
     Active Substance: MIDAZOLAM\MIDAZOLAM HYDROCHLORIDE
     Indication: ANALGESIC THERAPY
     Dosage: 10 MG
     Route: 051
     Dates: start: 20150709, end: 20150710
  3. DORMICUM [Concomitant]
     Active Substance: MIDAZOLAM\MIDAZOLAM HYDROCHLORIDE
     Dosage: 20 MG
     Route: 051
     Dates: start: 20150711, end: 20150714
  4. LANSOPRAZOLE. [Concomitant]
     Active Substance: LANSOPRAZOLE
     Dosage: 15 MG
     Route: 048
     Dates: end: 20150708
  5. LOXOPROFEN [Concomitant]
     Active Substance: LOXOPROFEN
     Dosage: 180  MG
     Route: 048
     Dates: end: 20150708
  6. MAGNESIUM OXIDE. [Concomitant]
     Active Substance: MAGNESIUM OXIDE
     Dosage: 1500 MG
     Route: 048
     Dates: start: 20150627, end: 20150701
  7. DECADRON [Concomitant]
     Active Substance: DEXAMETHASONE
     Dosage: 6.6 MG
     Route: 051
     Dates: start: 20150630, end: 20150701
  8. DECADRON [Concomitant]
     Active Substance: DEXAMETHASONE
     Dosage: 13.2 MG
     Route: 051
     Dates: start: 20150702, end: 20150713
  9. METHADONE [Suspect]
     Active Substance: METHADONE HYDROCHLORIDE
     Indication: CANCER PAIN
     Dosage: 10 MG (20 MG DAILY DOSE)
     Route: 048
     Dates: start: 20150624, end: 20150714

REACTIONS (1)
  - Pleural mesothelioma [Fatal]

NARRATIVE: CASE EVENT DATE: 20150714
